FAERS Safety Report 20015690 (Version 1)
Quarter: 2021Q4

REPORT INFORMATION
  Report Type: Spontaneous
  Country: US (occurrence: None)
  Receive Date: 20211101
  Receipt Date: 20211101
  Transmission Date: 20220303
  Serious: No
  Sender: FDA-Public Use
  Company Number: None

PATIENT
  Age: 83 Year
  Sex: Male
  Weight: 77.56 kg

DRUGS (16)
  1. ABIRATERONE [Suspect]
     Active Substance: ABIRATERONE
     Indication: Prostate cancer
     Dosage: FREQUENCY : DAILY;?
     Route: 048
     Dates: start: 20210603, end: 20211101
  2. PREDNISONE [Suspect]
     Active Substance: PREDNISONE
     Indication: Prostate cancer
     Dosage: FREQUENCY : TWICE A DAY;?
     Route: 048
     Dates: start: 20210603, end: 20211101
  3. SENOKOT [Concomitant]
     Active Substance: SENNOSIDES
  4. ZINC [Concomitant]
     Active Substance: ZINC
  5. DILTIAZEM [Concomitant]
     Active Substance: DILTIAZEM
  6. OMEPRAZOLE [Concomitant]
     Active Substance: OMEPRAZOLE
  7. FINASTERIDE [Concomitant]
     Active Substance: FINASTERIDE
  8. VITAMIN C [Concomitant]
     Active Substance: ASCORBIC ACID
  9. MELATONIN [Concomitant]
     Active Substance: MELATONIN
  10. KRILL OIL [Concomitant]
     Active Substance: DIETARY SUPPLEMENT\KRILL OIL
  11. VITAMIN D3 [Concomitant]
     Active Substance: CHOLECALCIFEROL
  12. VITAMIN E [Concomitant]
     Active Substance: .ALPHA.-TOCOPHEROL
  13. ASPIRIN [Concomitant]
     Active Substance: ASPIRIN
  14. POTASSIUM CITRATE [Concomitant]
     Active Substance: POTASSIUM CITRATE
  15. COENZYME Q10 [Concomitant]
     Active Substance: DIETARY SUPPLEMENT\UBIDECARENONE
  16. ADVIL [Concomitant]
     Active Substance: IBUPROFEN

REACTIONS (2)
  - Panic attack [None]
  - Refusal of treatment by patient [None]

NARRATIVE: CASE EVENT DATE: 20211101
